FAERS Safety Report 20979279 (Version 1)
Quarter: 2022Q2

REPORT INFORMATION
  Report Type: Spontaneous
  Country: NL (occurrence: NL)
  Receive Date: 20220620
  Receipt Date: 20220620
  Transmission Date: 20220721
  Serious: Yes (Other)
  Sender: FDA-Public Use
  Company Number: NL-ABBVIE-22K-114-4419680-00

PATIENT
  Sex: Female

DRUGS (3)
  1. PREDNISONE [Suspect]
     Active Substance: PREDNISONE
     Indication: Product used for unknown indication
     Dosage: UNK
     Route: 065
  2. HUMIRA [Suspect]
     Active Substance: ADALIMUMAB
     Indication: Product used for unknown indication
     Dosage: UNK
     Route: 058
  3. METHOTREXATE [Concomitant]
     Active Substance: METHOTREXATE
     Indication: Product used for unknown indication
     Dosage: UNK
     Route: 065

REACTIONS (39)
  - Choking [Unknown]
  - Sjogren^s syndrome [Unknown]
  - Polychondritis [Unknown]
  - Polyneuropathy [Unknown]
  - Neck injury [Unknown]
  - Neck pain [Unknown]
  - Odynophagia [Unknown]
  - Swelling [Unknown]
  - Sensory loss [Unknown]
  - Stenosis [Unknown]
  - Arteritis [Unknown]
  - Thyroid disorder [Unknown]
  - Dysstasia [Unknown]
  - Nasal dryness [Unknown]
  - Arthropathy [Unknown]
  - Small fibre neuropathy [Unknown]
  - Gait disturbance [Unknown]
  - Balance disorder [Unknown]
  - Bursa disorder [Unknown]
  - Dry mouth [Unknown]
  - Dry throat [Unknown]
  - Loss of personal independence in daily activities [Unknown]
  - Skin wrinkling [Unknown]
  - Arthritis [Unknown]
  - Chondropathy [Unknown]
  - Nerve injury [Unknown]
  - Muscular weakness [Unknown]
  - Osteoarthritis [Unknown]
  - Nerve compression [Unknown]
  - Vasculitis [Unknown]
  - Vestibular disorder [Unknown]
  - Taste disorder [Unknown]
  - Spinal column injury [Unknown]
  - Arthritis [Unknown]
  - Cartilage injury [Unknown]
  - Pain [Unknown]
  - Asthenia [Unknown]
  - Carpal tunnel syndrome [Unknown]
  - Nasal septum disorder [Unknown]
